FAERS Safety Report 5502167-0 (Version None)
Quarter: 2007Q4

REPORT INFORMATION
  Report Type: 
  Country: None (occurrence: None)
  Receive Date: 20071030
  Receipt Date: 20071022
  Transmission Date: 20080405
  Serious: Yes (Other)
  Sender: FDA-Public Use
  Company Number: JP-ASTRAZENECA-2007AP06335

PATIENT
  Age: 91 Year
  Sex: Male

DRUGS (8)
  1. MEROPENEM [Suspect]
     Indication: PNEUMONIA
     Route: 042
     Dates: start: 20070826, end: 20070828
  2. LAC-TAC [Concomitant]
     Route: 042
     Dates: start: 20070826
  3. ASCORBIC ACID [Concomitant]
     Dosage: BOLUS
     Route: 042
     Dates: start: 20070826
  4. VITAMEDIN [Concomitant]
     Route: 042
     Dates: start: 20070826
  5. LANSOPRAZOLE [Concomitant]
     Indication: GASTRIC ULCER HAEMORRHAGE
     Route: 042
     Dates: start: 20070826
  6. ADONA [Concomitant]
     Indication: GASTRIC ULCER HAEMORRHAGE
     Route: 042
     Dates: start: 20070826
  7. TRANSAMINE [Concomitant]
     Indication: GASTRIC ULCER HAEMORRHAGE
     Route: 042
     Dates: start: 20070826
  8. BISOLVON [Concomitant]
     Indication: PNEUMONIA
     Dosage: BOLUS
     Route: 042
     Dates: start: 20070826

REACTIONS (1)
  - HEPATIC FUNCTION ABNORMAL [None]
